FAERS Safety Report 8255648-3 (Version None)
Quarter: 2012Q2

REPORT INFORMATION
  Report Type: 
  Country: None (occurrence: None)
  Receive Date: 20120403
  Receipt Date: 20120328
  Transmission Date: 20120825
  Serious: Yes (Other)
  Sender: FDA-Public Use
  Company Number: PHEH2012US006861

PATIENT
  Sex: Female
  Weight: 74.843 kg

DRUGS (1)
  1. DIOVAN HCT [Suspect]
     Dosage: 160 MG, BID

REACTIONS (2)
  - CARDIAC FAILURE CONGESTIVE [None]
  - HEADACHE [None]
